FAERS Safety Report 13478671 (Version 1)
Quarter: 2017Q2

REPORT INFORMATION
  Report Type: Not Available
  Country: US (occurrence: US)
  Receive Date: 20170425
  Receipt Date: 20170425
  Transmission Date: 20170830
  Serious: No
  Sender: FDA-Public Use
  Company Number: US-MEDIMETRIKS-2016-US-002264

PATIENT
  Sex: 0

DRUGS (1)
  1. NEO-SYNALAR [Suspect]
     Active Substance: FLUOCINOLONE ACETONIDE\NEOMYCIN SULFATE
     Route: 061

REACTIONS (3)
  - Application site erythema [Unknown]
  - Dermatitis atopic [Unknown]
  - Application site irritation [Unknown]
